FAERS Safety Report 10396251 (Version 2)
Quarter: 2014Q3

REPORT INFORMATION
  Report Type: Spontaneous
  Country: BE (occurrence: BE)
  Receive Date: 20140820
  Receipt Date: 20140827
  Transmission Date: 20150326
  Serious: Yes (Other)
  Sender: FDA-Public Use
  Company Number: PHHY2014BE102784

PATIENT
  Age: 70 Year
  Sex: Male

DRUGS (3)
  1. ZOLPIDEM [Concomitant]
     Active Substance: ZOLPIDEM\ZOLPIDEM TARTRATE
     Dosage: 1 DF, QD
  2. CLORAZEPIC ACID [Concomitant]
     Active Substance: CLORAZEPIC ACID
  3. QUETIAPINE [Suspect]
     Active Substance: QUETIAPINE
     Indication: MENTAL DISORDER
     Dosage: 200 MG, BID

REACTIONS (14)
  - Urinary retention [Recovered/Resolved]
  - Hyponatraemia [Recovered/Resolved]
  - Anuria [Unknown]
  - Bladder dilatation [Recovered/Resolved]
  - Ureteric dilatation [Unknown]
  - Oedema peripheral [Unknown]
  - Hyperkalaemia [Recovered/Resolved]
  - Hydronephrosis [Unknown]
  - Renal failure [Recovered/Resolved]
  - Abdominal distension [Unknown]
  - Hyperuricaemia [Recovered/Resolved]
  - Metabolic acidosis [Recovered/Resolved]
  - Hypotonia [Unknown]
  - Flank pain [Unknown]
